FAERS Safety Report 12783191 (Version 1)
Quarter: 2016Q3

REPORT INFORMATION
  Report Type: Spontaneous
  Country: US (occurrence: US)
  Receive Date: 20160927
  Receipt Date: 20160927
  Transmission Date: 20161109
  Serious: Yes (Other)
  Sender: FDA-Public Use
  Company Number: None

PATIENT
  Age: 59 Year
  Sex: Female
  Weight: 67.5 kg

DRUGS (1)
  1. LYRICA [Suspect]
     Active Substance: PREGABALIN
     Indication: POST LAMINECTOMY SYNDROME
     Route: 048
     Dates: start: 20150413, end: 20160912

REACTIONS (4)
  - Dyspnoea [None]
  - Condition aggravated [None]
  - Chronic obstructive pulmonary disease [None]
  - Bladder prolapse [None]

NARRATIVE: CASE EVENT DATE: 20150413
